FAERS Safety Report 18792497 (Version 2)
Quarter: 2021Q1

REPORT INFORMATION
  Report Type: Spontaneous
  Country: US (occurrence: US)
  Receive Date: 20210127
  Receipt Date: 20210204
  Transmission Date: 20210419
  Serious: Yes (Death, Hospitalization, Other)
  Sender: FDA-Public Use
  Company Number: US-AKCEA THERAPEUTICS-2021IS001005

PATIENT
  Age: 71 Year
  Sex: Male
  Weight: 75.7 kg

DRUGS (17)
  1. TEGSEDI [Suspect]
     Active Substance: INOTERSEN SODIUM
     Indication: HEREDITARY NEUROPATHIC AMYLOIDOSIS
     Route: 058
     Dates: end: 20210111
  2. FOSAMAX [Concomitant]
     Active Substance: ALENDRONATE SODIUM
     Route: 048
  3. MULTIVITAMINS /00116001/ [Concomitant]
     Active Substance: VITAMINS
     Route: 048
  4. ISSD (INTEGRATED SYRINGE SAFETY DEVICE) [Suspect]
     Active Substance: DEVICE
  5. PROTONIX /00661201/ [Concomitant]
     Active Substance: OMEPRAZOLE
     Route: 048
  6. MYFORTIC [Concomitant]
     Active Substance: MYCOPHENOLATE SODIUM
     Route: 048
  7. PRAVASTATIN SODIUM. [Concomitant]
     Active Substance: PRAVASTATIN SODIUM
     Route: 048
  8. CLARITIN [Concomitant]
     Active Substance: LORATADINE
     Route: 048
  9. MAGNESIUM [Concomitant]
     Active Substance: MAGNESIUM
     Route: 048
  10. MIDODRINE HCL [Concomitant]
     Active Substance: MIDODRINE HYDROCHLORIDE
     Route: 048
  11. PROGRAF [Concomitant]
     Active Substance: TACROLIMUS
     Route: 048
  12. LASIX [Concomitant]
     Active Substance: FUROSEMIDE
     Route: 048
  13. TYLENOL [Concomitant]
     Active Substance: ACETAMINOPHEN
     Route: 048
  14. ASPIRIN 81 [Concomitant]
     Active Substance: ASPIRIN
     Route: 048
  15. GABAPENTIN. [Concomitant]
     Active Substance: GABAPENTIN
     Route: 048
  16. ZYRTEC [Concomitant]
     Active Substance: CETIRIZINE HYDROCHLORIDE
     Route: 048
  17. BACTRIM [Concomitant]
     Active Substance: SULFAMETHOXAZOLE\TRIMETHOPRIM
     Route: 048

REACTIONS (3)
  - Ventricular fibrillation [Fatal]
  - Cardiac arrest [Fatal]
  - Brain injury [Fatal]

NARRATIVE: CASE EVENT DATE: 20210105
